FAERS Safety Report 12503624 (Version 2)
Quarter: 2016Q4

REPORT INFORMATION
  Report Type: Spontaneous
  Country: JP (occurrence: JP)
  Receive Date: 20160628
  Receipt Date: 20161011
  Transmission Date: 20170207
  Serious: Yes (Other)
  Sender: FDA-Public Use
  Company Number: JP-BRISTOL-MYERS SQUIBB COMPANY-21577325

PATIENT
  Age: 64 Year
  Sex: Male

DRUGS (13)
  1. MINOMYCIN [Concomitant]
     Active Substance: MINOCYCLINE HYDROCHLORIDE
     Dosage: UNK
     Route: 065
  2. ISONARIF [Concomitant]
     Active Substance: ISONIAZID\RIFAMPIN
     Indication: PRODUCT USED FOR UNKNOWN INDICATION
     Dosage: UNK
     Route: 065
     Dates: end: 201410
  3. DEXART [Concomitant]
     Active Substance: DEXAMETHASONE SODIUM PHOSPHATE
     Indication: PRODUCT USED FOR UNKNOWN INDICATION
     Dosage: 6.6 MG, QD
     Route: 042
     Dates: start: 20140806
  4. CETUXIMAB [Suspect]
     Active Substance: CETUXIMAB
     Indication: SQUAMOUS CELL CARCINOMA OF HEAD AND NECK
     Dosage: 560 MG, UNKNOWN
     Route: 042
     Dates: start: 20141008
  5. CETUXIMAB [Suspect]
     Active Substance: CETUXIMAB
     Dosage: 345 MG, UNKNOWN
     Route: 042
     Dates: start: 20141120
  6. STRONGER NEO-MINOPHAGEN C [Suspect]
     Active Substance: AMMONIUM GLYCYRRHIZATE\CYSTEINE HYDROCHLORIDE\GLYCINE
     Indication: HEPATIC FUNCTION ABNORMAL
     Dosage: UNK UNK, UNKNOWN
     Route: 065
  7. ISONARIF [Concomitant]
     Active Substance: ISONIAZID\RIFAMPIN
     Dosage: 300 MG, QD
     Route: 048
     Dates: start: 20140813
  8. CETUXIMAB [Suspect]
     Active Substance: CETUXIMAB
     Dosage: 345 MG, UNKNOWN
     Route: 042
     Dates: start: 20141105
  9. CETUXIMAB [Suspect]
     Active Substance: CETUXIMAB
     Dosage: 350 MG, UNK
     Route: 042
     Dates: start: 20141113
  10. MINOMYCIN [Concomitant]
     Active Substance: MINOCYCLINE HYDROCHLORIDE
     Dosage: 200 MG, BID
     Route: 048
     Dates: start: 20141007, end: 20141016
  11. BENFOTIAMINE W/BIOTIN/CALCIUM PANTOTHENATE/HY [Concomitant]
     Indication: PRODUCT USED FOR UNKNOWN INDICATION
     Dosage: UNK
     Route: 065
     Dates: end: 201410
  12. MINOMYCIN [Concomitant]
     Active Substance: MINOCYCLINE HYDROCHLORIDE
     Indication: PRODUCT USED FOR UNKNOWN INDICATION
     Dosage: UNK
     Route: 065
     Dates: end: 201410
  13. RADIOTHERAPY [Concomitant]
     Active Substance: RADIATION THERAPY
     Dosage: UNK, UNKNOWN
     Route: 065
     Dates: start: 20141009, end: 20141204

REACTIONS (8)
  - Stomatitis [Recovered/Resolved]
  - Radiation skin injury [Not Recovered/Not Resolved]
  - Aspartate aminotransferase increased [Recovering/Resolving]
  - Dermatitis acneiform [Recovering/Resolving]
  - Hyperkalaemia [Recovered/Resolved]
  - Hepatic function abnormal [Recovering/Resolving]
  - Alanine aminotransferase increased [Recovering/Resolving]
  - Dry skin [Not Recovered/Not Resolved]

NARRATIVE: CASE EVENT DATE: 20141012
